FAERS Safety Report 6652652-3 (Version None)
Quarter: 2010Q1

REPORT INFORMATION
  Report Type: 
  Country: None (occurrence: None)
  Receive Date: 20100326
  Receipt Date: 20100318
  Transmission Date: 20100710
  Serious: No
  Sender: FDA-Public Use
  Company Number: 2009BI026738

PATIENT
  Age: 37 Year
  Sex: Female

DRUGS (1)
  1. TYSABRI [Suspect]
     Indication: MULTIPLE SCLEROSIS
     Route: 042
     Dates: start: 20080611

REACTIONS (4)
  - ANGINA PECTORIS [None]
  - AUTONOMIC NERVOUS SYSTEM IMBALANCE [None]
  - GASTRIC DISORDER [None]
  - MITRAL VALVE INCOMPETENCE [None]
